FAERS Safety Report 15640552 (Version 1)
Quarter: 2018Q4

REPORT INFORMATION
  Report Type: Other
  Country: US (occurrence: US)
  Receive Date: 20181120
  Receipt Date: 20181120
  Transmission Date: 20190205
  Serious: Yes (Death, Life-Threatening, Hospitalization)
  Sender: FDA-Public Use
  Company Number: US-NOSTRUM LABORATORIES, INC.-2059100

PATIENT
  Age: 48 Year
  Sex: Female

DRUGS (3)
  1. OXYCODONE NO OTHER INFORMATION GIVEN, NLI DOES NOT MANUFACTURE THIS DR [Concomitant]
     Route: 048
  2. HEROIN FORM UNKNOWN, ROUTE UNKNOWN, NLI DOES NOT MANUFACTURE [Concomitant]
  3. MORPHINE SULFATE. [Suspect]
     Active Substance: MORPHINE SULFATE
     Indication: DRUG USE DISORDER
     Route: 048

REACTIONS (3)
  - Autonomic nervous system imbalance [None]
  - Toxic leukoencephalopathy [Fatal]
  - Death [Fatal]
